FAERS Safety Report 23357107 (Version 1)
Quarter: 2023Q4

REPORT INFORMATION
  Report Type: Spontaneous
  Country: US (occurrence: None)
  Receive Date: 20231230
  Receipt Date: 20231230
  Transmission Date: 20240109
  Serious: Yes (unspecified)
  Sender: FDA-Public Use
  Company Number: None

PATIENT
  Age: 75 Year
  Sex: Male
  Weight: 68.85 kg

DRUGS (16)
  1. JARDIANCE [Suspect]
     Active Substance: EMPAGLIFLOZIN
     Indication: Cardiac failure congestive
     Dosage: OTHER QUANTITY : 1 CAPSULE(S);?FREQUENCY : DAILY;?
     Route: 048
  2. ATORVASTATIN [Concomitant]
     Active Substance: ATORVASTATIN
  3. FUROSEMIDE [Concomitant]
     Active Substance: FUROSEMIDE
  4. LOSARTAN [Concomitant]
     Active Substance: LOSARTAN
  5. PANTOPRAZOLE [Concomitant]
     Active Substance: PANTOPRAZOLE
  6. SPIRONOLACTONE [Concomitant]
     Active Substance: SPIRONOLACTONE
  7. TAMSULOSIN [Concomitant]
     Active Substance: TAMSULOSIN
  8. ResMed AirSense 10 CPAP [Concomitant]
  9. METAMUCIL [Concomitant]
     Active Substance: PLANTAGO SEED
  10. ISO 100 protein powder [Concomitant]
  11. VITAMINS D3 [Concomitant]
  12. Vitamins B12 [Concomitant]
  13. ASCORBIC ACID [Concomitant]
     Active Substance: ASCORBIC ACID
  14. IRON [Concomitant]
     Active Substance: IRON
  15. ZINC [Concomitant]
     Active Substance: PYRITHIONE ZINC\ZINC\ZINC CHLORIDE
  16. ASPIRIN [Concomitant]
     Active Substance: ASPIRIN

REACTIONS (1)
  - Cellulitis [None]

NARRATIVE: CASE EVENT DATE: 20231219
